FAERS Safety Report 16326012 (Version 1)
Quarter: 2019Q2

REPORT INFORMATION
  Report Type: Report from Study
  Country: GB (occurrence: GB)
  Receive Date: 20190517
  Receipt Date: 20190517
  Transmission Date: 20190711
  Serious: Yes (Other)
  Sender: FDA-Public Use
  Company Number: PHHY2019GB108516

PATIENT
  Sex: Male

DRUGS (1)
  1. COSENTYX [Suspect]
     Active Substance: SECUKINUMAB
     Indication: PSORIATIC ARTHROPATHY
     Dosage: 300 MG, Q2W (PREFILLED PEN)
     Route: 058
     Dates: start: 20190416

REACTIONS (5)
  - Neuralgia [Unknown]
  - Product administration error [Unknown]
  - Psoriatic arthropathy [Unknown]
  - Pain of skin [Unknown]
  - Inappropriate schedule of product administration [Unknown]
